FAERS Safety Report 8420317-3 (Version None)
Quarter: 2012Q2

REPORT INFORMATION
  Report Type: 
  Country: None (occurrence: None)
  Receive Date: 20120607
  Receipt Date: 20120530
  Transmission Date: 20120825
  Serious: Yes (Death, Life-Threatening, Hospitalization)
  Sender: FDA-Public Use
  Company Number: GB-BAXTER-2012BAX007495

PATIENT
  Age: 75 Year
  Sex: Male
  Weight: 59.3 kg

DRUGS (11)
  1. RITUXIMAB [Suspect]
     Indication: NON-HODGKIN'S LYMPHOMA
     Route: 042
     Dates: start: 20111122, end: 20120329
  2. METOCLOPRAMIDE [Concomitant]
     Route: 048
     Dates: start: 20120329
  3. CHLORPHENIRAMINE TAB [Concomitant]
     Route: 042
     Dates: start: 20120330
  4. VINCRISTINE SULFATE [Suspect]
     Indication: NON-HODGKIN'S LYMPHOMA
     Route: 042
     Dates: start: 20111122, end: 20120329
  5. ACETAMINOPHEN [Concomitant]
     Indication: PREMEDICATION
     Route: 048
     Dates: start: 20120329
  6. ONDANSETRON [Concomitant]
     Indication: PREMEDICATION
     Route: 048
     Dates: start: 20120329
  7. CYCLOPHOSPHAMIDE [Suspect]
     Indication: NON-HODGKIN'S LYMPHOMA
     Route: 042
     Dates: start: 20111122, end: 20120329
  8. INOTUZUMAB OZOGAMICIN [Suspect]
     Indication: NON-HODGKIN'S LYMPHOMA
     Route: 042
     Dates: start: 20111123, end: 20120330
  9. CHLORPHENIRAMINE TAB [Concomitant]
     Indication: PREMEDICATION
     Route: 042
     Dates: start: 20120329, end: 20120329
  10. PREDNISONE [Suspect]
     Indication: NON-HODGKIN'S LYMPHOMA
     Route: 048
     Dates: start: 20111122, end: 20120329
  11. LANSOPRAZOLE [Concomitant]
     Indication: PREMEDICATION
     Route: 042
     Dates: start: 20111115

REACTIONS (2)
  - NEUTROPHIL COUNT DECREASED [None]
  - PNEUMONIA [None]
